FAERS Safety Report 15152324 (Version 2)
Quarter: 2018Q3

REPORT INFORMATION
  Report Type: Report from Study
  Country: BR (occurrence: BR)
  Receive Date: 20180717
  Receipt Date: 20180813
  Transmission Date: 20181010
  Serious: Yes (Life-Threatening, Hospitalization, Other)
  Sender: FDA-Public Use
  Company Number: BR-ROCHE-1860858

PATIENT
  Sex: Female
  Weight: 49 kg

DRUGS (9)
  1. XOLAIR [Suspect]
     Active Substance: OMALIZUMAB
     Route: 058
     Dates: start: 2012
  2. DIPYRONE [Suspect]
     Active Substance: DIPYRONE
     Indication: PRODUCT USED FOR UNKNOWN INDICATION
     Route: 065
  3. AEROLIN [Concomitant]
     Active Substance: ALBUTEROL
     Indication: PRODUCT USED FOR UNKNOWN INDICATION
     Route: 065
  4. CLAVULIN [Concomitant]
     Active Substance: AMOXICILLIN\CLAVULANIC ACID
     Indication: PRODUCT USED FOR UNKNOWN INDICATION
     Dosage: Q12H
     Route: 048
  5. XOLAIR [Suspect]
     Active Substance: OMALIZUMAB
     Indication: ASTHMA
     Dosage: 2 DF (150 MG), BIW
     Route: 058
     Dates: start: 201308
  6. XOLAIR [Suspect]
     Active Substance: OMALIZUMAB
     Indication: ASTHMA
     Dosage: 225 MG, BIW (EVERY 15 DAYS)
     Route: 058
  7. XOLAIR [Suspect]
     Active Substance: OMALIZUMAB
     Route: 058
     Dates: start: 201402
  8. FLIXOTIDE [Concomitant]
     Active Substance: FLUTICASONE PROPIONATE
     Indication: ASTHMA
     Route: 065
  9. AMOXICILLIN. [Concomitant]
     Active Substance: AMOXICILLIN
     Indication: PRODUCT USED FOR UNKNOWN INDICATION
     Dosage: Q8H
     Route: 048

REACTIONS (19)
  - Asthma [Recovering/Resolving]
  - Haemorrhagic ovarian cyst [Unknown]
  - Dyspnoea [Recovering/Resolving]
  - Malaise [Unknown]
  - Rhinitis allergic [Unknown]
  - Sensitivity to weather change [Unknown]
  - Productive cough [Unknown]
  - Weight decreased [Unknown]
  - Asthmatic crisis [Not Recovered/Not Resolved]
  - Influenza [Recovered/Resolved]
  - Pneumonia [Unknown]
  - Adenoidal disorder [Unknown]
  - Drug ineffective [Unknown]
  - Sinusitis [Recovered/Resolved]
  - Nasopharyngitis [Unknown]
  - Tremor [Unknown]
  - Bronchitis [Unknown]
  - Drug dependence [Unknown]
  - Product use in unapproved indication [Unknown]
